FAERS Safety Report 4284565-9 (Version None)
Quarter: 2004Q1

REPORT INFORMATION
  Report Type: 
  Country: None (occurrence: None)
  Receive Date: 20040130
  Receipt Date: 20040115
  Transmission Date: 20041129
  Serious: Yes (Other)
  Sender: FDA-Public Use
  Company Number: US-JNJFOC-20030906315

PATIENT
  Age: 60 Year
  Sex: Female
  Weight: 126.1 kg

DRUGS (3)
  1. ELMIRON [Suspect]
     Indication: CYSTITIS INTERSTITIAL
     Dosage: SEE IMAGE
     Route: 048
     Dates: start: 19961001
  2. ELMIRON [Suspect]
     Indication: CYSTITIS INTERSTITIAL
     Dosage: SEE IMAGE
     Route: 048
     Dates: start: 20030901
  3. ASPIRIN [Concomitant]

REACTIONS (2)
  - CONTUSION [None]
  - VEIN DISORDER [None]
